FAERS Safety Report 9097397 (Version 2)
Quarter: 2014Q1

REPORT INFORMATION
  Report Type: Report from Study
  Country: US (occurrence: US)
  Receive Date: 20130212
  Receipt Date: 20140120
  Transmission Date: 20141002
  Serious: Yes (Hospitalization)
  Sender: FDA-Public Use
  Company Number: US-ELI_LILLY_AND_COMPANY-US201302000484

PATIENT
  Age: 57 Year
  Sex: Male

DRUGS (20)
  1. TERIPARATIDE [Suspect]
     Indication: OSTEOPOROSIS
     Dosage: 20 UG, QD
     Route: 065
     Dates: start: 201206
  2. TERIPARATIDE [Suspect]
     Dosage: 20 UG, QD
     Route: 065
     Dates: start: 201206
  3. TERIPARATIDE [Suspect]
     Dosage: 20 UG, QD
     Route: 065
  4. PREDNISONE [Concomitant]
     Dosage: UNK
  5. ZETIA [Concomitant]
     Dosage: UNK
  6. RAPAFLO [Concomitant]
     Dosage: UNK
  7. AZATHIOPRINE [Concomitant]
     Dosage: UNK
  8. SULFAMETHOXAZOLE W/TRIMETHOPRIM [Concomitant]
     Dosage: UNK
  9. ADVAIR DISKUS [Concomitant]
     Dosage: UNK
  10. SINGULAIR [Concomitant]
     Dosage: UNK
  11. ALBUTEROL [Concomitant]
     Dosage: UNK
  12. PROAIR [Concomitant]
     Dosage: UNK
  13. SERTRALINE [Concomitant]
     Dosage: UNK
  14. AMBIEN [Concomitant]
     Dosage: UNK
  15. NITROGLYCERINE [Concomitant]
     Dosage: UNK
  16. DILTIAZEM [Concomitant]
     Dosage: UNK
  17. SPIRIVA [Concomitant]
     Dosage: UNK
  18. FUROSEMIDE [Concomitant]
     Dosage: UNK
  19. RAMIPRIL [Concomitant]
     Dosage: UNK
  20. ISOSORBIDE [Concomitant]
     Dosage: UNK

REACTIONS (5)
  - Arthropathy [Not Recovered/Not Resolved]
  - Atrial fibrillation [Unknown]
  - Pneumonia [Unknown]
  - Joint injury [Unknown]
  - Skeletal injury [Unknown]
